FAERS Safety Report 7680072-1 (Version None)
Quarter: 2011Q3

REPORT INFORMATION
  Report Type: 
  Country: None (occurrence: None)
  Receive Date: 20110812
  Receipt Date: 20110809
  Transmission Date: 20111222
  Serious: Yes (Hospitalization, Other)
  Sender: FDA-Public Use
  Company Number: FR-ROCHE-779085

PATIENT
  Age: 54 Year
  Sex: Male

DRUGS (7)
  1. RIBAVIRIN [Suspect]
     Indication: HEPATITIS C
     Route: 048
  2. PEGINTERFERON ALFA-2A [Suspect]
     Indication: HEPATITIS C
     Route: 058
  3. RIBAVIRIN [Suspect]
     Route: 048
     Dates: start: 20100619
  4. ACETAMINOPHEN [Concomitant]
  5. RIBAVIRIN [Suspect]
     Dosage: DOSE; 6 TABLETS/ DAY
     Route: 048
     Dates: start: 20100601
  6. PEGINTERFERON ALFA-2A [Suspect]
     Route: 058
     Dates: start: 20100619
  7. VITAMIN D [Concomitant]

REACTIONS (3)
  - SARCOIDOSIS [None]
  - PERICARDITIS [None]
  - LUNG DISORDER [None]
